FAERS Safety Report 18367462 (Version 1)
Quarter: 2020Q4

REPORT INFORMATION
  Report Type: Spontaneous
  Country: MX (occurrence: MX)
  Receive Date: 20201009
  Receipt Date: 20201009
  Transmission Date: 20210114
  Serious: Yes (Hospitalization)
  Sender: FDA-Public Use
  Company Number: MX-ANIPHARMA-2020-MX-000051

PATIENT
  Age: 40 Year
  Sex: Female
  Weight: 60 kg

DRUGS (5)
  1. DEXAMETHASONE. [Suspect]
     Active Substance: DEXAMETHASONE
     Route: 065
     Dates: start: 20200916
  2. PREDNISONA [Suspect]
     Active Substance: PREDNISONE
     Dosage: ONE AND HALF A DAY
     Route: 065
     Dates: start: 20200920
  3. ANASTROZOLE. [Suspect]
     Active Substance: ANASTROZOLE
     Indication: BREAST CANCER
     Dosage: 1 MG HS
     Route: 048
     Dates: start: 2018
  4. LEVOTHYROXINE. [Concomitant]
     Active Substance: LEVOTHYROXINE
     Dosage: IN THE MORNING 1 PILL OF 100
     Route: 065
  5. ADEMACETIB [Suspect]
     Active Substance: INVESTIGATIONAL PRODUCT
     Route: 065

REACTIONS (10)
  - Arthralgia [Unknown]
  - Vision blurred [Unknown]
  - Bone pain [Unknown]
  - Fear [Unknown]
  - Thrombocytopenic purpura [Unknown]
  - Abnormal behaviour [Unknown]
  - Haemorrhage [Unknown]
  - Bone disorder [Unknown]
  - Cerebral disorder [Unknown]
  - Stress [Unknown]

NARRATIVE: CASE EVENT DATE: 20200914
